FAERS Safety Report 9700587 (Version 2)
Quarter: 2013Q4

REPORT INFORMATION
  Report Type: Spontaneous
  Country: CA (occurrence: None)
  Receive Date: 20131119
  Receipt Date: 20131227
  Transmission Date: 20140711
  Serious: Yes (Other)
  Sender: FDA-Public Use
  Company Number: 2013000307

PATIENT
  Age: 57 Year
  Sex: Female
  Weight: 87 kg

DRUGS (2)
  1. ACEON [Suspect]
     Indication: HYPERTENSION
     Route: 048
     Dates: start: 20131018, end: 20131105
  2. CANDESARTAN W/ HYDROCHLOROTHIAZIDE ( CANDESARTAN W/HYDROCHLOROTHIAZIDE) [Concomitant]

REACTIONS (5)
  - Lactose intolerance [None]
  - Abdominal distension [None]
  - Nasal congestion [None]
  - Cough [None]
  - Condition aggravated [None]
